FAERS Safety Report 8797054 (Version 3)
Quarter: 2015Q1

REPORT INFORMATION
  Report Type: Report from Study
  Country: US (occurrence: US)
  Receive Date: 20120919
  Receipt Date: 20150217
  Transmission Date: 20150721
  Serious: Yes (Death)
  Sender: FDA-Public Use
  Company Number: US-ROCHE-1124366

PATIENT
  Sex: Female

DRUGS (19)
  1. NAVELBINE [Concomitant]
     Active Substance: VINORELBINE TARTRATE
  2. DECADRON [Concomitant]
     Active Substance: DEXAMETHASONE
     Route: 042
  3. DOXORUBICIN [Concomitant]
     Active Substance: DOXORUBICIN
  4. ALTEPLASE [Concomitant]
     Active Substance: ALTEPLASE
     Route: 042
  5. AVASTIN [Suspect]
     Active Substance: BEVACIZUMAB
     Indication: OVARIAN CANCER
     Route: 042
     Dates: start: 20090428
  6. CYCLOPHOSPHAMIDE. [Concomitant]
     Active Substance: CYCLOPHOSPHAMIDE
     Route: 042
  7. LEUCOVORIN [Concomitant]
     Active Substance: LEUCOVORIN
     Route: 042
  8. 5 FLUORO URACIL [Concomitant]
     Active Substance: FLUOROURACIL
     Route: 042
  9. MAGNESIUM SULFATE. [Concomitant]
     Active Substance: MAGNESIUM SULFATE
     Route: 065
  10. GEMZAR [Concomitant]
     Active Substance: GEMCITABINE HYDROCHLORIDE
  11. DOLASETRON [Concomitant]
     Active Substance: DOLASETRON
     Route: 042
  12. PEGFILGRASTIM [Concomitant]
     Active Substance: PEGFILGRASTIM
     Route: 058
  13. OXALIPLATIN. [Concomitant]
     Active Substance: OXALIPLATIN
     Route: 042
  14. ALOXI [Concomitant]
     Active Substance: PALONOSETRON HYDROCHLORIDE
     Route: 042
  15. TYLENOL [Concomitant]
     Active Substance: ACETAMINOPHEN
     Route: 042
  16. DEXAMETHASONE. [Concomitant]
     Active Substance: DEXAMETHASONE
     Route: 042
  17. TOPOTECAN [Concomitant]
     Active Substance: TOPOTECAN\TOPOTECAN HYDROCHLORIDE
     Route: 042
  18. BENADRYL [Concomitant]
     Active Substance: DIPHENHYDRAMINE HYDROCHLORIDE
     Route: 042
  19. GEMCITABINE [Concomitant]
     Active Substance: GEMCITABINE\GEMCITABINE HYDROCHLORIDE
     Route: 042

REACTIONS (6)
  - Weight decreased [Unknown]
  - Disease progression [Fatal]
  - Decreased appetite [Unknown]
  - Diarrhoea [Recovered/Resolved]
  - Muscle spasms [Unknown]
  - Fatigue [Unknown]
